FAERS Safety Report 7023615-3 (Version None)
Quarter: 2010Q3

REPORT INFORMATION
  Report Type: 
  Country: None (occurrence: None)
  Receive Date: 20100930
  Receipt Date: 20100930
  Transmission Date: 20110219
  Serious: Yes (Life-Threatening, Disabling, Other)
  Sender: FDA-Public Use
  Company Number: None

PATIENT
  Age: 50 Year
  Sex: Female
  Weight: 52.1637 kg

DRUGS (2)
  1. ALDARA [Suspect]
     Indication: PRECANCEROUS SKIN LESION
     Dosage: AS PRESCRIBED AS PRESCRIBED TOP
     Route: 061
     Dates: start: 20050701, end: 20071201
  2. ALDARA [Suspect]
     Indication: SKIN CANCER
     Dosage: AS PRESCRIBED AS PRESCRIBED TOP
     Route: 061
     Dates: start: 20050701, end: 20071201

REACTIONS (14)
  - ASTHENIA [None]
  - AUTOIMMUNE DISORDER [None]
  - CONSTIPATION [None]
  - CONTUSION [None]
  - DEAFNESS [None]
  - DRY EYE [None]
  - DRY MOUTH [None]
  - HEART RATE IRREGULAR [None]
  - NERVE INJURY [None]
  - PAIN [None]
  - RASH [None]
  - SPLENOMEGALY [None]
  - THYMUS ENLARGEMENT [None]
  - WEIGHT DECREASED [None]
